FAERS Safety Report 10213502 (Version 1)
Quarter: 2014Q2

REPORT INFORMATION
  Report Type: Spontaneous
  Country: US (occurrence: None)
  Receive Date: 20140529
  Receipt Date: 20140529
  Transmission Date: 20141212
  Serious: Yes (Other)
  Sender: FDA-Public Use
  Company Number: US-ZYDUS-003488

PATIENT
  Sex: Male

DRUGS (2)
  1. LEVETIRACETAM [Suspect]
     Indication: PARTIAL SEIZURES
  2. PHENYTOIN [Concomitant]

REACTIONS (6)
  - Dyskinesia [None]
  - Grimacing [None]
  - Blepharospasm [None]
  - Convulsion [None]
  - Dry mouth [None]
  - Dystonia [None]
